FAERS Safety Report 7471820-4 (Version None)
Quarter: 2011Q2

REPORT INFORMATION
  Report Type: 
  Country: None (occurrence: None)
  Receive Date: 20110511
  Receipt Date: 20100524
  Transmission Date: 20111010
  Serious: No
  Sender: FDA-Public Use
  Company Number: A0861048A

PATIENT
  Age: 73 Year
  Sex: Female
  Weight: 106.8 kg

DRUGS (12)
  1. LEVOTHYROXINE SODIUM [Concomitant]
  2. OMEPRAZOLE [Concomitant]
  3. FENTANYL [Concomitant]
  4. TYKERB [Suspect]
     Indication: BREAST CANCER
     Dosage: 250TAB IN THE MORNING
     Route: 048
     Dates: start: 20090514
  5. DIOVAN [Concomitant]
  6. MULTI-VITAMIN [Concomitant]
  7. ASPIRIN [Concomitant]
  8. FISH OIL [Concomitant]
  9. ACETAMINOPHEN [Concomitant]
  10. CALCIUM [Concomitant]
  11. LOVASTATIN [Concomitant]
  12. LUNESTA [Concomitant]

REACTIONS (4)
  - ONYCHOCLASIS [None]
  - FEELING HOT [None]
  - PRURITUS [None]
  - RASH ERYTHEMATOUS [None]
